FAERS Safety Report 4396688-4 (Version None)
Quarter: 2004Q3

REPORT INFORMATION
  Report Type: 
  Country: None (occurrence: None)
  Receive Date: 20040714
  Receipt Date: 20040714
  Transmission Date: 20050211
  Serious: Yes (Hospitalization)
  Sender: FDA-Public Use
  Company Number: None

PATIENT
  Age: 56 Year
  Sex: Female
  Weight: 43.0917 kg

DRUGS (2)
  1. ZELNORM [Suspect]
     Indication: IRRITABLE BOWEL SYNDROME
     Dosage: 1 DAILY BY MOUTH
     Dates: start: 20031025, end: 20040109
  2. LEXAPRO [Suspect]
     Indication: STRESS SYMPTOMS
     Dosage: 1 DAILY BY MOUTH
     Dates: start: 20031208, end: 20040527

REACTIONS (12)
  - BILATERAL HYDRONEPHROSIS [None]
  - CONSTIPATION [None]
  - DIARRHOEA [None]
  - DRUG EFFECT DECREASED [None]
  - DRUG INEFFECTIVE [None]
  - HYPERTENSION [None]
  - NAUSEA [None]
  - RECTAL HAEMORRHAGE [None]
  - RENAL FAILURE ACUTE [None]
  - RETROPERITONEAL FIBROSIS [None]
  - URETERIC OBSTRUCTION [None]
  - VOMITING [None]
